FAERS Safety Report 5464300-9 (Version None)
Quarter: 2007Q3

REPORT INFORMATION
  Report Type: 
  Country: None (occurrence: None)
  Receive Date: 20070921
  Receipt Date: 20070919
  Transmission Date: 20080115
  Serious: Yes (Other)
  Sender: FDA-Public Use
  Company Number: B0487625A

PATIENT
  Age: 15 Year

DRUGS (1)
  1. PAXIL [Suspect]
     Route: 048

REACTIONS (1)
  - AGGRESSION [None]
